FAERS Safety Report 7970543-2 (Version None)
Quarter: 2011Q4

REPORT INFORMATION
  Report Type: 
  Country: None (occurrence: None)
  Receive Date: 20111212
  Receipt Date: 20111201
  Transmission Date: 20120403
  Serious: Yes (Hospitalization)
  Sender: FDA-Public Use
  Company Number: US-BAYER-2011-024168

PATIENT
  Age: 34 Year
  Sex: Female
  Weight: 90.703 kg

DRUGS (7)
  1. YAZ [Suspect]
     Indication: CONTRACEPTION
     Dosage: UNK
     Route: 048
     Dates: start: 20070101, end: 20080101
  2. SINGULAIR [Concomitant]
     Dosage: 10 MG, QD
  3. NEXIUM [Concomitant]
     Dosage: 40 MG, UNK
  4. EFFEXOR [Concomitant]
     Dosage: 37.5 MG, BID
  5. XOPENEX [Concomitant]
  6. FEXOFENADINE [Concomitant]
     Dosage: 180 MG, QD
  7. ALBUTEROL [Concomitant]

REACTIONS (7)
  - GASTROOESOPHAGEAL REFLUX DISEASE [None]
  - GALLBLADDER INJURY [None]
  - HEADACHE [None]
  - CHOLECYSTITIS CHRONIC [None]
  - APHAGIA [None]
  - VOMITING [None]
  - DIARRHOEA [None]
